FAERS Safety Report 8485626-0 (Version None)
Quarter: 2012Q3

REPORT INFORMATION
  Report Type: 
  Country: None (occurrence: None)
  Receive Date: 20120703
  Receipt Date: 20120626
  Transmission Date: 20120928
  Serious: Yes (Life-Threatening, Hospitalization)
  Sender: FDA-Public Use
  Company Number: DE-PFIZER INC-DE-WYE-H02715908

PATIENT
  Age: 62 Year
  Sex: Male

DRUGS (51)
  1. AVELOX [Suspect]
     Indication: CHRONIC OBSTRUCTIVE PULMONARY DISEASE
  2. DISTRANEURIN [Suspect]
     Indication: ALCOHOL WITHDRAWAL SYNDROME
     Dosage: 2.0 DF, 3X/DAY
     Route: 048
     Dates: start: 20050630, end: 20050703
  3. CLORAZEPATE DIPOTASSIUM [Suspect]
     Dosage: 5 MG, 3X/DAY
     Route: 048
     Dates: start: 20050705, end: 20050705
  4. PREDNISONE TAB [Suspect]
     Dosage: UNKNOWN
     Route: 048
     Dates: start: 20050719
  5. DELIX PLUS [Suspect]
     Indication: MYOCARDIAL ISCHAEMIA
     Dosage: 1 DF, 1X/DAY
     Route: 048
     Dates: start: 20050703
  6. PREDNISOLONE [Suspect]
     Indication: CHRONIC OBSTRUCTIVE PULMONARY DISEASE
     Dosage: 15 MG, 1X/DAY
     Route: 048
     Dates: start: 20050716, end: 20050718
  7. THEOPHYLLINE [Suspect]
     Indication: CHRONIC OBSTRUCTIVE PULMONARY DISEASE
     Dosage: 200 - 600 MG
     Route: 042
     Dates: start: 20050627, end: 20050630
  8. CLORAZEPATE DIPOTASSIUM [Suspect]
     Indication: SEDATION
     Dosage: 5 MG, 3X/DAY
     Route: 048
     Dates: start: 20050627, end: 20050702
  9. FORADIL [Suspect]
     Indication: CHRONIC OBSTRUCTIVE PULMONARY DISEASE
     Dosage: 1 DF, 2X/DAY
     Route: 055
     Dates: start: 20050629, end: 20050718
  10. VERAPAMIL [Suspect]
     Indication: TACHYARRHYTHMIA
     Dosage: 80 MG - 240 MG DAILY
     Route: 048
     Dates: start: 20050718
  11. ISOPTIN [Suspect]
     Indication: ARRHYTHMIA
     Dosage: 80 MG, 2X/DAY
     Route: 048
     Dates: start: 20050709
  12. SODIUM CHLORIDE [Suspect]
     Indication: HYPOVOLAEMIA
     Dosage: 1000 ML/DAY
     Route: 042
     Dates: start: 20050627, end: 20050703
  13. NITROGLYCERIN [Suspect]
     Indication: ESSENTIAL HYPERTENSION
     Dosage: 50 MG, 1X/DAY
     Route: 042
     Dates: start: 20050702, end: 20050702
  14. ALT-INSULIN [Suspect]
     Indication: BLOOD GLUCOSE
     Dosage: DF
     Route: 058
     Dates: start: 20050703, end: 20050703
  15. CALCIUM [Suspect]
     Indication: OSTEOPOROSIS
     Dosage: 500 MG, 2X/DAY
     Route: 048
     Dates: start: 20050715, end: 20050718
  16. SALMETEROL XINAFOATE [Suspect]
     Dosage: UNK
     Route: 055
     Dates: start: 20050718
  17. FUROSEMIDE [Suspect]
     Dosage: 40 MG, 1X/DAY
     Route: 048
     Dates: start: 20050707
  18. THEOPHYLLINE [Suspect]
     Dosage: 200 MG, UNK
     Route: 042
     Dates: start: 20050721, end: 20050721
  19. RAMIPRIL [Suspect]
     Indication: MYOCARDIAL ISCHAEMIA
     Dosage: ^DF DAILY^
     Route: 048
     Dates: start: 20050630, end: 20050702
  20. CLONIDINE HYDROCHLORIDE [Suspect]
     Indication: ALCOHOL WITHDRAWAL SYNDROME
     Dosage: 1.5 G, 1X/DAY
     Route: 042
     Dates: start: 20050628, end: 20050630
  21. JUNIK [Suspect]
     Indication: CHRONIC OBSTRUCTIVE PULMONARY DISEASE
     Dosage: 1 DF, 2X/DAY
     Route: 055
     Dates: start: 20050627, end: 20050715
  22. PREDNISONE TAB [Suspect]
     Dosage: UNKNOWN
     Route: 048
     Dates: start: 20050707, end: 20050715
  23. MARCUMAR [Suspect]
     Indication: ATRIAL FIBRILLATION
     Dosage: ^DF^
     Route: 048
     Dates: start: 20050710
  24. VERAPAMIL [Suspect]
     Dosage: 80 MG, 3X/DAY
     Route: 048
  25. NORVASC [Suspect]
     Dosage: 5 MG, 1X/DAY
     Route: 048
     Dates: start: 20050704, end: 20050709
  26. THEOPHYLLINE [Suspect]
     Dosage: 600 MG, 1X/DAY
     Route: 048
  27. HALOPERIDOL [Suspect]
     Dosage: 10 GTT, 1X/DAY
     Route: 048
     Dates: start: 20050703, end: 20050703
  28. CLONIDINE HYDROCHLORIDE [Suspect]
     Dosage: 1.5 G, 1X/DAY
     Route: 042
     Dates: start: 20050703, end: 20050704
  29. SPIRIVA [Suspect]
     Indication: CHRONIC OBSTRUCTIVE PULMONARY DISEASE
     Dosage: 1 DF, 1X/DAY
     Route: 055
     Dates: start: 20040601
  30. HEPARIN [Suspect]
     Indication: THROMBOSIS
     Dosage: 25000 IU, 1X/DAY
     Route: 058
     Dates: start: 20050627, end: 20050709
  31. AMBROXOL [Suspect]
     Indication: MUCOUS MEMBRANE DISORDER
     Dosage: 14 GTT, 2X/DAY
     Route: 048
     Dates: start: 20050701, end: 20050718
  32. KALINOR-BRAUSETABLETTEN [Suspect]
     Indication: HYPOKALAEMIA
     Dosage: 1 DF, 1X/DAY
     Route: 048
     Dates: start: 20050704, end: 20050714
  33. PANTOPRAZOLE [Suspect]
     Indication: PROPHYLAXIS AGAINST GASTROINTESTINAL ULCER
     Dosage: 40 MG, 1X/DAY
     Route: 048
     Dates: start: 20050629, end: 20050630
  34. PANTOPRAZOLE [Suspect]
     Dosage: 40 MG, 1X/DAY
     Route: 048
     Dates: start: 20050703, end: 20050718
  35. ISOPTIN [Suspect]
     Indication: ATRIAL FIBRILLATION
     Dosage: 80 MG UNKNOWN FREQUENCY
     Route: 048
     Dates: start: 20050718
  36. THEOPHYLLINE [Suspect]
     Dosage: 600 MG, 1X/DAY
     Route: 048
     Dates: start: 20050703, end: 20050709
  37. THEOPHYLLINE [Suspect]
     Dosage: 200 MG, UNK
     Route: 042
     Dates: start: 20050718, end: 20050718
  38. HALOPERIDOL [Suspect]
     Indication: SEDATION
     Dosage: 10 GTT, 1X/DAY
     Route: 048
     Dates: start: 20050629, end: 20050630
  39. BRICANYL [Suspect]
     Indication: DYSPNOEA
     Dosage: 0.5 DF, 2X/DAY
     Route: 058
     Dates: start: 20050627, end: 20050709
  40. BEROTEC [Suspect]
     Indication: CHRONIC OBSTRUCTIVE PULMONARY DISEASE
     Dosage: 2-3 TIMES WEEKLY
     Route: 055
     Dates: start: 20040601
  41. PREDNISONE TAB [Suspect]
     Indication: CHRONIC OBSTRUCTIVE PULMONARY DISEASE
     Dosage: UNKNOWN
     Route: 048
     Dates: start: 20050628, end: 20050705
  42. OXAZEPAM [Suspect]
     Indication: SEDATION
     Dosage: ^DF^
     Route: 048
     Dates: start: 20050708, end: 20050708
  43. DIGITOXIN TAB [Suspect]
     Indication: MYOCARDIAL ISCHAEMIA
     Dosage: 0.1 MG, 1X/DAY
     Route: 048
     Dates: start: 20050708
  44. PREDNISOLONE [Suspect]
     Dosage: 100 MG, 1X/DAY
     Route: 048
     Dates: start: 20050721, end: 20050721
  45. FLUTICASONE PROPIONATE [Suspect]
     Dosage: UNK
     Route: 055
     Dates: start: 20050718
  46. OMEPRAZOLE [Suspect]
     Indication: GASTRIC DISORDER
     Dosage: 20 MG, 1X/DAY, IN THE EVENING
     Route: 048
     Dates: start: 20050719
  47. AVELOX [Suspect]
     Indication: INFECTION
     Dosage: 400 MG, 1X/DAY
     Route: 048
     Dates: start: 20050627, end: 20050703
  48. ACETYLCYSTEINE [Suspect]
     Indication: MUCOUS MEMBRANE DISORDER
     Dosage: 300 MG, 2X/DAY
     Route: 048
     Dates: start: 20050629, end: 20050712
  49. ERGOCALCIFEROL [Suspect]
     Indication: OSTEOPOROSIS
     Dosage: 1000 IU, 1X/DAY
     Route: 048
     Dates: start: 20050718, end: 20050718
  50. CALCIUM CARBONATE [Suspect]
     Indication: OSTEOPOROSIS
     Dosage: 2 DF, 1X/DAY
     Route: 048
     Dates: start: 20050719
  51. SALUTEC [Suspect]
     Indication: CORONARY ARTERY DISEASE
     Dosage: 5/25 DAILY
     Route: 048
     Dates: start: 20050703

REACTIONS (6)
  - PYREXIA [None]
  - STEVENS-JOHNSON SYNDROME [None]
  - BLISTER [None]
  - NIKOLSKY'S SIGN [None]
  - TOXIC EPIDERMAL NECROLYSIS [None]
  - PRURITUS [None]
